FAERS Safety Report 7661255-3 (Version None)
Quarter: 2011Q3

REPORT INFORMATION
  Report Type: 
  Country: None (occurrence: None)
  Receive Date: 20110805
  Receipt Date: 20101116
  Transmission Date: 20111222
  Serious: No
  Sender: FDA-Public Use
  Company Number: US-ABBOTT-10P-163-0685601-00

PATIENT
  Sex: Female
  Weight: 59.928 kg

DRUGS (11)
  1. ALLOPURINOL [Concomitant]
     Indication: GOUT
  2. DIGOXIN [Concomitant]
     Indication: HYPERTENSION
  3. SPIRIVA [Concomitant]
     Indication: ASTHMA
  4. ASPIRIN [Concomitant]
     Indication: PRODUCT USED FOR UNKNOWN INDICATION
     Route: 048
  5. METHIMAZOLE [Concomitant]
     Indication: PRODUCT USED FOR UNKNOWN INDICATION
  6. WARFARIN SODIUM [Concomitant]
     Indication: PRODUCT USED FOR UNKNOWN INDICATION
  7. ADVAIR DISKUS 100/50 [Concomitant]
     Indication: ASTHMA
  8. NIASPAN [Suspect]
     Indication: BLOOD CHOLESTEROL INCREASED
     Dates: start: 20101113
  9. VERAPAMIL [Concomitant]
     Indication: HYPERTENSION
  10. FENOFIBRATE [Concomitant]
     Indication: BLOOD CHOLESTEROL INCREASED
  11. FUROSEMIDE [Concomitant]
     Indication: FLUID RETENTION

REACTIONS (2)
  - PARAESTHESIA [None]
  - FLUSHING [None]
